FAERS Safety Report 5794909-4 (Version None)
Quarter: 2008Q2

REPORT INFORMATION
  Report Type: 
  Country: None (occurrence: None)
  Receive Date: 20080627
  Receipt Date: 20080627
  Transmission Date: 20081010
  Serious: Yes (Other)
  Sender: FDA-Public Use
  Company Number: None

PATIENT
  Age: 30 Year
  Sex: Female
  Weight: 68.0396 kg

DRUGS (1)
  1. CHANTIX [Suspect]
     Indication: SMOKING CESSATION THERAPY
     Dosage: 1 ONCE A DAY PO
     Route: 048
     Dates: start: 20080401, end: 20080601

REACTIONS (5)
  - AGITATION [None]
  - ALCOHOLISM [None]
  - DRUG DEPENDENCE [None]
  - MAJOR DEPRESSION [None]
  - SUICIDAL IDEATION [None]
